FAERS Safety Report 14239881 (Version 1)
Quarter: 2017Q4

REPORT INFORMATION
  Report Type: Spontaneous
  Country: US (occurrence: US)
  Receive Date: 20171130
  Receipt Date: 20171130
  Transmission Date: 20180321
  Serious: No
  Sender: FDA-Public Use
  Company Number: US-009507513-1711USA010220

PATIENT
  Age: 47 Year
  Sex: Male

DRUGS (2)
  1. TEMODAR [Suspect]
     Active Substance: TEMOZOLOMIDE
     Indication: PANCREATIC NEUROENDOCRINE TUMOUR
     Dosage: 200 MG/M2, DAILY (ON DAYS 10 TO 14 GIVEN EVERY 28 DAYS)
     Route: 048
  2. CAPECITABINE. [Suspect]
     Active Substance: CAPECITABINE
     Indication: PANCREATIC NEUROENDOCRINE TUMOUR
     Dosage: 750 MG/M2, TWICE DAILY (ON DAYS 1 TO 14)

REACTIONS (2)
  - Product use in unapproved indication [Unknown]
  - Fatigue [Unknown]
